FAERS Safety Report 15300334 (Version 3)
Quarter: 2018Q3

REPORT INFORMATION
  Report Type: Spontaneous
  Country: FR (occurrence: FR)
  Receive Date: 20180821
  Receipt Date: 20180907
  Transmission Date: 20181010
  Serious: Yes (Hospitalization)
  Sender: FDA-Public Use
  Company Number: FR-TEVA-2018-FR-944284

PATIENT
  Age: 57 Year
  Sex: Male
  Weight: 84 kg

DRUGS (8)
  1. KEPPRA [Suspect]
     Active Substance: LEVETIRACETAM
     Indication: SEIZURE
     Route: 048
     Dates: start: 20180706, end: 20180719
  2. VANCOMYCINE [Suspect]
     Active Substance: VANCOMYCIN
     Indication: BRAIN EMPYEMA
     Route: 042
     Dates: start: 20180704, end: 20180718
  3. TAVANIC 500 MG, COMPRIM? PELLICUL? S?CABLE [Suspect]
     Active Substance: LEVOFLOXACIN
     Indication: BRAIN EMPYEMA
     Route: 048
     Dates: start: 20180712, end: 20180714
  4. LANSOPRAZOLE. [Suspect]
     Active Substance: LANSOPRAZOLE
     Indication: PRODUCT USED FOR UNKNOWN INDICATION
     Route: 048
     Dates: start: 20180704, end: 20180720
  5. LEVOFLOXACIN. [Suspect]
     Active Substance: LEVOFLOXACIN
     Indication: BRAIN EMPYEMA
     Route: 048
     Dates: start: 20180712, end: 20180714
  6. CLAFORAN [Suspect]
     Active Substance: CEFOTAXIME SODIUM
     Indication: BRAIN EMPYEMA
     Dosage: 16 GRAM DAILY;
     Route: 042
     Dates: start: 20180704, end: 20180712
  7. CLAFORAN [Suspect]
     Active Substance: CEFOTAXIME SODIUM
     Route: 042
     Dates: start: 20180704, end: 20180712
  8. ONDANSETRON [Suspect]
     Active Substance: ONDANSETRON
     Indication: PRODUCT USED FOR UNKNOWN INDICATION
     Route: 048
     Dates: start: 20180704, end: 20180718

REACTIONS (3)
  - Eosinophilia [Recovered/Resolved]
  - Face oedema [Recovered/Resolved]
  - Rash maculo-papular [Recovered/Resolved]

NARRATIVE: CASE EVENT DATE: 20180713
